FAERS Safety Report 24539745 (Version 2)
Quarter: 2025Q3

REPORT INFORMATION
  Report Type: Spontaneous
  Country: EG (occurrence: EG)
  Receive Date: 20241023
  Receipt Date: 20250811
  Transmission Date: 20251021
  Serious: Yes (Other)
  Sender: SANDOZ
  Company Number: EG-002147023-NVSC2021EG192789

PATIENT
  Age: 74 Year
  Sex: Male

DRUGS (15)
  1. COSENTYX [Suspect]
     Active Substance: SECUKINUMAB
     Route: 058
     Dates: start: 202209
  2. COSENTYX [Suspect]
     Active Substance: SECUKINUMAB
     Dosage: 150 MG, QW
     Route: 058
     Dates: start: 202102
  3. COSENTYX [Suspect]
     Active Substance: SECUKINUMAB
     Dosage: 300 MG, QW(2 PENS OF 150MG , FOR A MONTH)
     Route: 058
     Dates: start: 20210629
  4. COSENTYX [Suspect]
     Active Substance: SECUKINUMAB
     Dosage: 150 MG, QW
     Route: 058
     Dates: start: 202110
  5. COSENTYX [Suspect]
     Active Substance: SECUKINUMAB
     Dosage: 300 MG, QMO
     Route: 058
     Dates: start: 2024, end: 202406
  6. COSENTYX [Suspect]
     Active Substance: SECUKINUMAB
     Dosage: 300 MG, QMO (ONE PREFILLED SUBCUTANEOUS PEN OF COSENTYX 300MG EVERY MONTH AS MAINTENANCE DOSE NO LOA
     Route: 058
     Dates: start: 202404
  7. COSENTYX [Suspect]
     Active Substance: SECUKINUMAB
     Dosage: 300 MG, QMO (EVERY WEEK FOR 4 WEEKS AS LOADING DOSE)
     Route: 058
  8. COSENTYX [Suspect]
     Active Substance: SECUKINUMAB
     Dosage: 300 MG, Q2W (EVERY TWO WEEKS FOR 3-4 MONTHS AS MAINTENANCE DOSE)
     Route: 058
  9. COSENTYX [Suspect]
     Active Substance: SECUKINUMAB
     Indication: Psoriasis
     Route: 065
     Dates: start: 2018, end: 2020
  10. METHOTREXATE [Suspect]
     Active Substance: METHOTREXATE
     Indication: Product used for unknown indication
     Dosage: 6 DOSAGE FORM, QW (FOR 3 WEEKS BUT STOPPED AFTER 2 WEEKS), START DATE: ??-AUG-2022
     Route: 065
     Dates: end: 202208
  11. Betacor [Concomitant]
     Indication: Product used for unknown indication
     Dosage: UNK, TID (HALF TABLET AT MORNING ANDHALF TABLET AT NIGHT)
     Route: 065
  12. CRESTOR [Concomitant]
     Active Substance: ROSUVASTATIN CALCIUM
     Indication: Product used for unknown indication
     Dosage: UNK, QD  (ONCE DAILY BEFORE BEDTIME)
     Route: 065
  13. PLAVIX [Concomitant]
     Active Substance: CLOPIDOGREL BISULFATE
     Indication: Anticoagulant therapy
     Dosage: UNK, QD (6 YEARS AGO, 1 TABLET ONCE DAILY)
     Route: 048
  14. VASTAREL [Concomitant]
     Active Substance: TRIMETAZIDINE DIHYDROCHLORIDE
     Indication: Cardiac disorder
     Dosage: TID, 6 YEARS AGO, ONE TABLET AT MORNING AND AT NIGHT
     Route: 048
  15. VASTAREL [Concomitant]
     Active Substance: TRIMETAZIDINE DIHYDROCHLORIDE
     Route: 065

REACTIONS (12)
  - COVID-19 [Recovered/Resolved]
  - Pyrexia [Recovered/Resolved]
  - Dandruff [Unknown]
  - Pruritus [Unknown]
  - Drug ineffective [Recovered/Resolved]
  - Symptom recurrence [Not Recovered/Not Resolved]
  - International normalised ratio decreased [Unknown]
  - Psoriasis [Not Recovered/Not Resolved]
  - Platelet count decreased [Unknown]
  - Acne [Not Recovered/Not Resolved]
  - Diarrhoea [Recovered/Resolved]
  - Off label use [Recovered/Resolved]

NARRATIVE: CASE EVENT DATE: 20210819
